FAERS Safety Report 20985668 (Version 1)
Quarter: 2022Q2

REPORT INFORMATION
  Report Type: Spontaneous
  Country: US (occurrence: None)
  Receive Date: 20220621
  Receipt Date: 20220621
  Transmission Date: 20220721
  Serious: Yes (Other)
  Sender: FDA-Public Use
  Company Number: US-ROCHE-3079964

PATIENT
  Sex: Male

DRUGS (1)
  1. XELODA [Suspect]
     Active Substance: CAPECITABINE
     Indication: Neoplasm malignant
     Dosage: TAKE 1 TABLET BY MOUTH TWICE DAILY FOR 14 DAYS OF A 21 DAY CYCLE?STRENGTH: 500MG
     Route: 048
     Dates: start: 202108

REACTIONS (1)
  - Pneumonia [Recovered/Resolved]
